FAERS Safety Report 8145259-2 (Version None)
Quarter: 2012Q1

REPORT INFORMATION
  Report Type: 
  Country: None (occurrence: None)
  Receive Date: 20120214
  Receipt Date: 20120207
  Transmission Date: 20120608
  Serious: Yes (Other)
  Sender: FDA-Public Use
  Company Number: AUR-APL-2012-00853

PATIENT
  Sex: Female

DRUGS (1)
  1. ALENDRONIC ACID (ALENDRONIC ACID) [Suspect]
     Indication: OSTEOPOROSIS
     Dosage: 91 DOSAGE FORMS, 1 IN 1 WK), ORAL
     Route: 048

REACTIONS (5)
  - OEDEMA PERIPHERAL [None]
  - PAIN IN JAW [None]
  - DYSPHAGIA [None]
  - HEADACHE [None]
  - NECK PAIN [None]
